FAERS Safety Report 15681591 (Version 2)
Quarter: 2018Q4

REPORT INFORMATION
  Report Type: Spontaneous
  Country: US (occurrence: US)
  Receive Date: 20181203
  Receipt Date: 20181224
  Transmission Date: 20190205
  Serious: No
  Sender: FDA-Public Use
  Company Number: US-ASTRAZENECA-2018SF56561

PATIENT
  Age: 20281 Day
  Sex: Female
  Weight: 57.6 kg

DRUGS (3)
  1. SYMBICORT [Suspect]
     Active Substance: BUDESONIDE\FORMOTEROL FUMARATE DIHYDRATE
     Indication: ASTHMA
     Dosage: 160/4.5 MCG, 120 DOSE INHALER 2 PUFFS TWO TIMES A DAY
     Route: 055
     Dates: start: 2018
  2. VITAMIN B [Concomitant]
     Active Substance: VITAMIN B
     Indication: BLOOD TEST ABNORMAL
     Dosage: ONCE A WEEK
  3. VENTOLIN [Concomitant]
     Active Substance: ALBUTEROL SULFATE
     Indication: DYSPNOEA
     Dosage: AS REQUIRED

REACTIONS (7)
  - Productive cough [Not Recovered/Not Resolved]
  - Nasopharyngitis [Not Recovered/Not Resolved]
  - Wheezing [Unknown]
  - Blood test abnormal [Unknown]
  - Chest discomfort [Recovered/Resolved]
  - Product dose omission [Unknown]
  - Dyspnoea [Recovered/Resolved]

NARRATIVE: CASE EVENT DATE: 20181126
